FAERS Safety Report 9639734 (Version 1)
Quarter: 2013Q4

REPORT INFORMATION
  Report Type: Spontaneous
  Country: US (occurrence: None)
  Receive Date: 20131021
  Receipt Date: 20131021
  Transmission Date: 20140711
  Serious: Yes (Life-Threatening, Disabling)
  Sender: FDA-Public Use
  Company Number: None

PATIENT
  Age: 48 Year
  Sex: Male
  Weight: 103.87 kg

DRUGS (1)
  1. DESMOPRESSIN 0.01% BAUSCH + LOMB [Suspect]
     Indication: HYPOPITUITARISM
     Dosage: 50/ ONCE IN EACH TWICE DAILY
     Dates: start: 19920915

REACTIONS (5)
  - Parosmia [None]
  - Vertigo [None]
  - Muscle twitching [None]
  - Muscular weakness [None]
  - Product quality issue [None]
